FAERS Safety Report 7815374-9 (Version None)
Quarter: 2011Q4

REPORT INFORMATION
  Report Type: 
  Country: None (occurrence: None)
  Receive Date: 20111014
  Receipt Date: 20111011
  Transmission Date: 20120403
  Serious: Yes (Other)
  Sender: FDA-Public Use
  Company Number: FR-BRISTOL-MYERS SQUIBB COMPANY-16152001

PATIENT
  Age: 24 Year
  Sex: Female

DRUGS (1)
  1. ABILIFY [Suspect]
     Dosage: FOR 4 YEARS

REACTIONS (1)
  - BREAST CANCER [None]
